FAERS Safety Report 20171813 (Version 1)
Quarter: 2021Q4

REPORT INFORMATION
  Report Type: Spontaneous
  Country: US (occurrence: US)
  Receive Date: 20211210
  Receipt Date: 20211210
  Transmission Date: 20220303
  Serious: Yes (Other)
  Sender: FDA-Public Use
  Company Number: US-MLMSERVICE-20211124-3234455-1

PATIENT

DRUGS (2)
  1. PREDNISOLONE [Suspect]
     Active Substance: PREDNISOLONE
     Indication: Anterior chamber inflammation
     Dosage: UNK UNK, QD
     Route: 061
  2. CYCLOPENTOLATE 0.5 % [Concomitant]
     Indication: Anterior chamber inflammation
     Dosage: UNK, QD

REACTIONS (2)
  - Intraocular pressure increased [Recovering/Resolving]
  - Glaucoma [Recovering/Resolving]
